FAERS Safety Report 13179417 (Version 2)
Quarter: 2017Q1

REPORT INFORMATION
  Report Type: Spontaneous
  Country: US (occurrence: US)
  Receive Date: 20170202
  Receipt Date: 20170213
  Transmission Date: 20170428
  Serious: Yes (Other)
  Sender: FDA-Public Use
  Company Number: US-PFIZER INC-2016497331

PATIENT
  Age: 67 Year
  Sex: Female

DRUGS (18)
  1. GLIMEPIRIDE. [Concomitant]
     Active Substance: GLIMEPIRIDE
     Dosage: 1 MG, 1X/DAY
  2. HYDROCODONE/ACETAMINOPHEN [Concomitant]
     Active Substance: ACETAMINOPHEN\HYDROCODONE
     Indication: PAIN
     Dosage: 1 DF, AS NEEDED (EVERY 6-8 HOURS) (HYDROCODONE BITARTRATE 10 MG, PARACETAMOL 325 MG)
  3. TYLENOL PM [Concomitant]
     Active Substance: ACETAMINOPHEN\DIPHENHYDRAMINE
     Dosage: UNK
  4. BUTRANS [Concomitant]
     Active Substance: BUPRENORPHINE
     Dosage: 10 UG/HOUR APPLY 1PATCH TO SKIN EVERY 7 DAYS FOR 1 MONTH
     Route: 062
  5. DULOXETINE. [Concomitant]
     Active Substance: DULOXETINE
     Dosage: 60 MG, 1X/DAY
     Route: 048
  6. LEVOTHYROXINE. [Concomitant]
     Active Substance: LEVOTHYROXINE
     Dosage: 137 UG, 1X/DAY (BEFORE BREAKFAST)
     Route: 048
  7. IRON FERROUS SULFATE [Concomitant]
     Dosage: 1 DF, 1X/DAY (IRON 65 MG, FERROUS SULFATE 325 MG)
  8. FUROSEMIDE SANDOZ [Concomitant]
     Active Substance: FUROSEMIDE
     Dosage: 40 MG, 1X/DAY
     Route: 048
  9. BIOTIN [Concomitant]
     Active Substance: BIOTIN
     Dosage: 10000 UG, 1X/DAY
  10. PRAVASTINE [Concomitant]
     Dosage: 40 MG, 1X/DAY (AT BEDTIME)
     Route: 048
  11. VITAMIN D3 [Concomitant]
     Active Substance: CHOLECALCIFEROL
     Dosage: 2000 IU, 1X/DAY
  12. BETA CAROTENE [Concomitant]
     Dosage: 25000 IU, 1X/DAY
  13. ZZZQUIL NIGHTTIME SLEEP-AID [Concomitant]
     Active Substance: DIPHENHYDRAMINE HYDROCHLORIDE
     Dosage: UNK
  14. VITAMIN B12 [Concomitant]
     Active Substance: CYANOCOBALAMIN
     Dosage: 2500 UG, 1X/DAY
     Route: 060
  15. LYRICA [Suspect]
     Active Substance: PREGABALIN
     Dosage: 75 MG, THREE TIMES DAILY (TID) AS NEEDED
     Route: 048
  16. VITAMIN E [Concomitant]
     Active Substance: .ALPHA.-TOCOPHEROL
     Dosage: 1000 IU, 1X/DAY
  17. CALCIUM MAGNESIUM + ZINC PLUS, VITAMIN D3 [Concomitant]
     Dosage: 1 DF, 3X/DAY
     Route: 048
  18. METFORMIN [Concomitant]
     Active Substance: METFORMIN HYDROCHLORIDE
     Dosage: 500 MG, 2X/DAY (WITH MEALS)
     Route: 048

REACTIONS (3)
  - Rib fracture [Unknown]
  - Fall [Unknown]
  - Pelvic fracture [Unknown]
